FAERS Safety Report 25929448 (Version 1)
Quarter: 2025Q4

REPORT INFORMATION
  Report Type: Spontaneous
  Country: GB (occurrence: GB)
  Receive Date: 20251016
  Receipt Date: 20251016
  Transmission Date: 20260117
  Serious: Yes (Other)
  Sender: ABBVIE
  Company Number: None

PATIENT
  Age: 37 Year
  Sex: Female

DRUGS (2)
  1. ADALIMUMAB [Suspect]
     Active Substance: ADALIMUMAB
     Indication: Crohn^s disease
     Dosage: FIRST LOADING DOSE 40MG X 4 PEN INJECTIONS
     Route: 058
     Dates: end: 20250919
  2. IRON [Concomitant]
     Active Substance: IRON
     Indication: Adverse drug reaction
     Dates: start: 20250712

REACTIONS (13)
  - Vasculitis [Recovering/Resolving]
  - Injection site rash [Recovered/Resolved]
  - Injection site erythema [Unknown]
  - Joint swelling [Recovered/Resolved]
  - Arthralgia [Recovered/Resolved]
  - Peripheral swelling [Recovered/Resolved]
  - Pain in extremity [Recovered/Resolved]
  - Hypoaesthesia [Unknown]
  - Injection site pruritus [Recovering/Resolving]
  - Injection site papule [Unknown]
  - Injection site reaction [Unknown]
  - Gait disturbance [Unknown]
  - Injection site discolouration [Unknown]

NARRATIVE: CASE EVENT DATE: 20250901
